FAERS Safety Report 22917984 (Version 3)
Quarter: 2024Q1

REPORT INFORMATION
  Report Type: Spontaneous
  Country: US (occurrence: US)
  Receive Date: 20230907
  Receipt Date: 20240108
  Transmission Date: 20240410
  Serious: No
  Sender: FDA-Public Use
  Company Number: US-INCYTE CORPORATION-2023IN008186

PATIENT

DRUGS (2)
  1. JAKAFI [Suspect]
     Active Substance: RUXOLITINIB
     Indication: Myelofibrosis
     Dosage: 10 MILLIGRAM, BID
     Route: 048
     Dates: start: 202305
  2. JAKAFI [Suspect]
     Active Substance: RUXOLITINIB
     Dosage: 15 MILLIGRAM, BID
     Route: 048
     Dates: start: 202305

REACTIONS (8)
  - Bowel movement irregularity [Unknown]
  - Faeces hard [Unknown]
  - Dyschezia [Unknown]
  - Fatigue [Recovering/Resolving]
  - Decreased activity [Unknown]
  - Skin discolouration [Unknown]
  - Pigmentation disorder [Unknown]
  - Constipation [Unknown]
